FAERS Safety Report 10703776 (Version 2)
Quarter: 2015Q4

REPORT INFORMATION
  Report Type: Spontaneous
  Country: US (occurrence: US)
  Receive Date: 20150112
  Receipt Date: 20151112
  Transmission Date: 20160304
  Serious: Yes (Hospitalization)
  Sender: FDA-Public Use
  Company Number: US-PFIZER INC-2015006567

PATIENT

DRUGS (1)
  1. CEREBYX [Suspect]
     Active Substance: FOSPHENYTOIN SODIUM
     Dosage: UNK

REACTIONS (4)
  - Drug screen false positive [Unknown]
  - Seizure [Unknown]
  - Drug interaction [Unknown]
  - Product use issue [Unknown]
